FAERS Safety Report 4950796-5 (Version None)
Quarter: 2006Q1

REPORT INFORMATION
  Report Type: 
  Country: None (occurrence: None)
  Receive Date: 20060321
  Receipt Date: 20060321
  Transmission Date: 20060701
  Serious: Yes (Death)
  Sender: FDA-Public Use
  Company Number: None

PATIENT
  Sex: Male
  Weight: 104 kg

DRUGS (2)
  1. BICALUTAMIDE [Suspect]
     Indication: PROSTATE CANCER
     Dosage: 50 MG
     Dates: start: 20041108, end: 20051116
  2. ZOLADEX [Suspect]
     Dosage: 10.8 MG
     Dates: start: 20041108, end: 20051024

REACTIONS (5)
  - ABDOMINAL PAIN [None]
  - BONE DISORDER [None]
  - METASTASIS [None]
  - PERFORMANCE STATUS DECREASED [None]
  - RECTAL CANCER METASTATIC [None]
